FAERS Safety Report 10502987 (Version 1)
Quarter: 2014Q4

REPORT INFORMATION
  Report Type: Spontaneous
  Country: FI (occurrence: FI)
  Receive Date: 20141007
  Receipt Date: 20141007
  Transmission Date: 20150528
  Serious: Yes (Hospitalization)
  Sender: FDA-Public Use
  Company Number: FI-SA-2014SA135103

PATIENT
  Age: 70 Year
  Sex: Female
  Weight: 65 kg

DRUGS (11)
  1. INNOHEP [Concomitant]
     Active Substance: TINZAPARIN SODIUM
     Indication: PROPHYLAXIS
     Dosage: DOSE: 3500 KY
     Route: 058
     Dates: start: 20131218
  2. RAMIPRIL. [Concomitant]
     Active Substance: RAMIPRIL
     Route: 048
     Dates: start: 20120809
  3. ACLOVIR [Concomitant]
     Indication: PROPHYLAXIS
     Route: 048
     Dates: start: 20140905
  4. BISOPROLOL ACTAVIS [Concomitant]
     Active Substance: BISOPROLOL
     Route: 048
     Dates: start: 20120831
  5. ALEMTUZUMAB [Suspect]
     Active Substance: ALEMTUZUMAB
     Indication: CHRONIC LYMPHOCYTIC LEUKAEMIA
     Route: 058
     Dates: start: 20140904, end: 20140926
  6. DIGOXIN. [Concomitant]
     Active Substance: DIGOXIN
     Route: 048
     Dates: start: 20081003
  7. SULFAMETHOXAZOLE/TRIMETHOPRIM [Concomitant]
     Active Substance: SULFAMETHOXAZOLE\TRIMETHOPRIM
     Indication: PROPHYLAXIS
     Route: 048
     Dates: start: 20131129
  8. ALEMTUZUMAB [Suspect]
     Active Substance: ALEMTUZUMAB
     Indication: CHRONIC LYMPHOCYTIC LEUKAEMIA
     Route: 065
     Dates: start: 2014
  9. CALCIUM CARBONATE/COLECALCIFEROL [Concomitant]
     Active Substance: CALCIUM CARBONATE\CHOLECALCIFEROL
     Dosage: 500 MG/ 10 MCG
     Dates: start: 20060920
  10. KALEORID [Concomitant]
     Active Substance: POTASSIUM CHLORIDE
     Route: 048
     Dates: start: 20100226
  11. FURESIS [Concomitant]
     Active Substance: FUROSEMIDE
     Route: 048
     Dates: start: 20120117

REACTIONS (2)
  - Pyrexia [Not Recovered/Not Resolved]
  - Transfusion reaction [Not Recovered/Not Resolved]

NARRATIVE: CASE EVENT DATE: 20140926
